FAERS Safety Report 11318192 (Version 1)
Quarter: 2015Q3

REPORT INFORMATION
  Report Type: Spontaneous
  Country: FR (occurrence: FR)
  Receive Date: 20150728
  Receipt Date: 20150728
  Transmission Date: 20151125
  Serious: Yes (Other)
  Sender: FDA-Public Use
  Company Number: PHHY2015FR089193

PATIENT
  Age: 60 Year
  Sex: Male

DRUGS (1)
  1. CEFUROXIME. [Suspect]
     Active Substance: CEFUROXIME
     Indication: PROPHYLAXIS
     Dosage: 1 MG/0.1ML
     Route: 065

REACTIONS (3)
  - Toxicity to various agents [Unknown]
  - Macular oedema [Recovered/Resolved]
  - Retinal detachment [Recovered/Resolved]
